FAERS Safety Report 11804922 (Version 1)
Quarter: 2015Q4

REPORT INFORMATION
  Report Type: Spontaneous
  Country: US (occurrence: US)
  Receive Date: 20151205
  Receipt Date: 20151205
  Transmission Date: 20160305
  Serious: No
  Sender: FDA-Public Use
  Company Number: US-BAUSCH-BL-2014-007528

PATIENT
  Age: 43 Year
  Sex: Male

DRUGS (8)
  1. SERTRALINE [Concomitant]
     Active Substance: SERTRALINE HYDROCHLORIDE
     Indication: PRODUCT USED FOR UNKNOWN INDICATION
  2. XENAZINE [Suspect]
     Active Substance: TETRABENAZINE
     Route: 048
     Dates: start: 20141218
  3. XENAZINE [Suspect]
     Active Substance: TETRABENAZINE
     Route: 048
  4. RISPERIDONE. [Concomitant]
     Active Substance: RISPERIDONE
     Indication: PRODUCT USED FOR UNKNOWN INDICATION
  5. XENAZINE [Suspect]
     Active Substance: TETRABENAZINE
     Route: 048
     Dates: start: 20141111
  6. XENAZINE [Suspect]
     Active Substance: TETRABENAZINE
     Route: 048
  7. XENAZINE [Suspect]
     Active Substance: TETRABENAZINE
     Indication: HUNTINGTON^S DISEASE
     Route: 048
     Dates: start: 20141004
  8. XENAZINE [Suspect]
     Active Substance: TETRABENAZINE
     Route: 048
     Dates: start: 20140911, end: 20141110

REACTIONS (11)
  - Feeling abnormal [Unknown]
  - Fatigue [Unknown]
  - Balance disorder [Unknown]
  - Asthenia [Unknown]
  - Dysphagia [Unknown]
  - Nasopharyngitis [Unknown]
  - Hypokinesia [Unknown]
  - Hypersomnia [Unknown]
  - Musculoskeletal stiffness [Unknown]
  - Fall [Unknown]
  - Cough [Unknown]

NARRATIVE: CASE EVENT DATE: 2014
